FAERS Safety Report 16438802 (Version 6)
Quarter: 2019Q3

REPORT INFORMATION
  Report Type: Spontaneous
  Country: IT (occurrence: IT)
  Receive Date: 20190617
  Receipt Date: 20190708
  Transmission Date: 20191004
  Serious: Yes (Disabling, Other)
  Sender: FDA-Public Use
  Company Number: IT-PFIZER INC-2019238367

PATIENT
  Age: 50 Year
  Sex: Male
  Weight: 76 kg

DRUGS (8)
  1. VALSARTAN AND HYDROCHLOROTHIAZIDE [Concomitant]
     Active Substance: HYDROCHLOROTHIAZIDE\VALSARTAN
     Dosage: UNK
  2. MYCOPHENOLIC ACID. [Concomitant]
     Active Substance: MYCOPHENOLIC ACID
     Dosage: UNK
  3. CYCLOSPORINE. [Suspect]
     Active Substance: CYCLOSPORINE
     Indication: HEPATOCELLULAR CARCINOMA
     Dosage: 50 MG/DAY PER OS (STARTED ABOUT IN 2004; FOR MANY YEARS AT HIGHER DOSAGES)
     Route: 048
     Dates: start: 2004
  4. ACETYLSALICYLIC ACID [Concomitant]
     Active Substance: ASPIRIN
     Dosage: UNK
  5. DOXAZOSIN [Concomitant]
     Active Substance: DOXAZOSIN MESYLATE
     Dosage: UNK
  6. AMIODARONE HCL [Suspect]
     Active Substance: AMIODARONE HYDROCHLORIDE
     Indication: ATRIAL FIBRILLATION
     Dosage: 200 MG/DAY PER OS
     Route: 048
     Dates: start: 2017
  7. ALLOPURINOL. [Concomitant]
     Active Substance: ALLOPURINOL
     Dosage: UNK
  8. CYCLOSPORINE. [Suspect]
     Active Substance: CYCLOSPORINE
     Dosage: 50 MG/DAY PER OS (STARTED ABOUT IN 2004; FOR MANY YEARS AT HIGHER DOSAGES)
     Route: 048

REACTIONS (4)
  - Walking disability [Unknown]
  - Myopathy toxic [Unknown]
  - Myopathy [Unknown]
  - Toxicity to various agents [Unknown]
